FAERS Safety Report 9846388 (Version 2)
Quarter: 2014Q1

REPORT INFORMATION
  Report Type: Report from Study
  Country: BR (occurrence: BR)
  Receive Date: 20140127
  Receipt Date: 20140310
  Transmission Date: 20141002
  Serious: Yes (Other)
  Sender: FDA-Public Use
  Company Number: PHHY2014BR007264

PATIENT
  Age: 92 Year
  Sex: Female
  Weight: 68 kg

DRUGS (11)
  1. EXELON PATCH [Suspect]
     Indication: DEMENTIA ALZHEIMER^S TYPE
     Dosage: 9MG/5CM2 (4.6 MG/24HOURS)
     Route: 062
  2. EXELON PATCH [Suspect]
     Dosage: 18MG/10CM2 (9.5 MG/24HOURS) AT A DOSE OF 1 ADHESIVE DAILY
     Route: 062
  3. REMINYL ER [Suspect]
     Dosage: UNK UKN, UNK
  4. FLUOXETINE [Suspect]
     Dosage: UNK UKN, UNK
  5. AAS PROTECT [Concomitant]
     Indication: ANTICOAGULANT THERAPY
     Dosage: UNK UKN, UNK
  6. PURAN T4 [Concomitant]
     Indication: THYROID DISORDER
     Dosage: UNK UKN, UNK
  7. GERIATON [Concomitant]
     Dosage: UNK UKN, UNK
  8. AMLODIPINE [Concomitant]
     Indication: BLOOD PRESSURE ABNORMAL
     Dosage: UNK UKN, UNK
  9. LIPITOR [Concomitant]
     Indication: PROPHYLAXIS
     Dosage: UNK UKN, UNK
  10. ZARGUS [Concomitant]
     Dosage: UNK UKN, UNK
  11. NEUTROFER [Concomitant]
     Dosage: UNK UKN, UNK

REACTIONS (8)
  - Lip disorder [Not Recovered/Not Resolved]
  - Crepitations [Not Recovered/Not Resolved]
  - Pollakiuria [Not Recovered/Not Resolved]
  - Sedation [Recovering/Resolving]
  - Vitamin D decreased [Not Recovered/Not Resolved]
  - Dysphonia [Unknown]
  - Memory impairment [Not Recovered/Not Resolved]
  - Drug ineffective [Not Recovered/Not Resolved]
